FAERS Safety Report 18589598 (Version 1)
Quarter: 2020Q4

REPORT INFORMATION
  Report Type: Other
  Country: CH (occurrence: CH)
  Receive Date: 20201208
  Receipt Date: 20201208
  Transmission Date: 20210114
  Serious: Yes (Other)
  Sender: FDA-Public Use
  Company Number: CH-ROCHE-2686525

PATIENT
  Age: 60 Year
  Sex: Male
  Weight: 74 kg

DRUGS (2)
  1. AVASTIN [Suspect]
     Active Substance: BEVACIZUMAB
     Indication: LUNG ADENOCARCINOMA
     Dosage: 10 MG PER KILOGRAM BODY WEIGHT
     Route: 065
     Dates: start: 20200930, end: 20201016
  2. TAXOL [Concomitant]
     Active Substance: PACLITAXEL

REACTIONS (3)
  - Immune-mediated hepatitis [Unknown]
  - Off label use [Unknown]
  - Intentional product use issue [Unknown]
